FAERS Safety Report 9671452 (Version 1)
Quarter: 2013Q4

REPORT INFORMATION
  Report Type: Spontaneous
  Country: US (occurrence: US)
  Receive Date: 20131106
  Receipt Date: 20131106
  Transmission Date: 20140711
  Serious: Yes (Hospitalization, Other)
  Sender: FDA-Public Use
  Company Number: PHEH2013US023141

PATIENT
  Sex: Male

DRUGS (4)
  1. DIOVAN [Suspect]
     Dosage: 320 MG, UNK
  2. DIOVAN [Suspect]
     Dosage: 320 MG, UNK
  3. DIOVAN HCT [Suspect]
     Dosage: UNK UKN, UNK
  4. METFORMIN [Suspect]
     Dosage: UNK UKN, UNK

REACTIONS (2)
  - Hyponatraemia [Unknown]
  - Ulcer haemorrhage [Unknown]
